FAERS Safety Report 17006175 (Version 5)
Quarter: 2020Q4

REPORT INFORMATION
  Report Type: Spontaneous
  Country: CA (occurrence: CA)
  Receive Date: 20191107
  Receipt Date: 20201210
  Transmission Date: 20210113
  Serious: Yes (Hospitalization, Other)
  Sender: FDA-Public Use
  Company Number: CA-PFIZER INC-2019229517

PATIENT
  Age: 48 Year
  Sex: Female

DRUGS (20)
  1. LOMOTIL [Concomitant]
     Active Substance: ATROPINE SULFATE\DIPHENOXYLATE HYDROCHLORIDE
     Dosage: UNK, AS NEEDED
     Route: 065
  2. VITAMIN D3 [Concomitant]
     Active Substance: CHOLECALCIFEROL
     Dosage: 1000 IU, 1X/DAY (OD)
     Route: 048
     Dates: start: 2006
  3. XELJANZ [Suspect]
     Active Substance: TOFACITINIB CITRATE
     Dosage: 5 MG, 2X/DAY
     Route: 048
     Dates: start: 20191005, end: 2019
  4. ONDANSETRON [Concomitant]
     Active Substance: ONDANSETRON
     Dosage: 8 MG, AS NEEDED
     Route: 065
  5. ESTROGEL [Concomitant]
     Active Substance: ESTRADIOL
     Dosage: UNK, 1 PUMP, 1X/DAY (OD)
     Route: 061
     Dates: start: 20170613
  6. ORACORT [TRIAMCINOLONE ACETONIDE] [Concomitant]
     Active Substance: TRIAMCINOLONE ACETONIDE
     Indication: MOUTH ULCERATION
     Dosage: UNK, AS NEEDED (PRN)
     Route: 065
  7. CRESTOR [Concomitant]
     Active Substance: ROSUVASTATIN CALCIUM
     Dosage: 20 MG, 1X/DAY (OD)
     Route: 048
  8. PREDNISONE. [Concomitant]
     Active Substance: PREDNISONE
     Dosage: 15 MG, 1X/DAY (OD)
     Route: 065
     Dates: start: 200412
  9. PREDNISONE. [Concomitant]
     Active Substance: PREDNISONE
     Dosage: 14 MG, 1X/DAY, 4 TIMES PER WEEK, TAPERING BY 1 MG EVERY 7 WEEKS
     Route: 065
  10. ACETAMINOPHEN. [Concomitant]
     Active Substance: ACETAMINOPHEN
     Dosage: (3X)325 MG, 2X/DAY(BID)
     Route: 048
  11. VENTOLIN [Concomitant]
     Active Substance: ALBUTEROL SULFATE
     Dosage: UNK, AS NEEDED (PRN)
     Route: 065
  12. NASONEX [Concomitant]
     Active Substance: MOMETASONE FUROATE
     Dosage: UNK, AS NEEDED (PRN)
     Route: 065
  13. VITAMIN B12 [Concomitant]
     Active Substance: CYANOCOBALAMIN
     Dosage: 1200 UG, 1X/DAY(OD)
     Route: 048
  14. XELJANZ [Suspect]
     Active Substance: TOFACITINIB CITRATE
     Indication: PSORIATIC ARTHROPATHY
     Dosage: 5 MG, 2X/DAY
     Route: 048
     Dates: start: 20190607, end: 2019
  15. XELJANZ [Suspect]
     Active Substance: TOFACITINIB CITRATE
     Dosage: HALF DOSE OF 5 MG BID
     Route: 048
     Dates: start: 2020, end: 2020
  16. JANUVIA [Concomitant]
     Active Substance: SITAGLIPTIN PHOSPHATE
     Dosage: 100 MG, 1X/DAY (OD)
     Route: 048
     Dates: start: 201507
  17. B10 [Concomitant]
     Active Substance: SODIUM BICARBONATE
     Dosage: 1200 UG, 1X/DAY (OD)
     Route: 048
  18. PANTOLOC [PANTOPRAZOLE] [Concomitant]
     Active Substance: PANTOPRAZOLE SODIUM
     Dosage: 40 MG, 1X/DAY (OD)
     Route: 065
     Dates: start: 2001
  19. BACTROBAN [Concomitant]
     Active Substance: MUPIROCIN\MUPIROCIN CALCIUM
     Indication: NASAL ULCER
     Dosage: UNK, AS NEEDED (PRN)
     Route: 065
  20. FLOVENT [Concomitant]
     Active Substance: FLUTICASONE PROPIONATE
     Dosage: UNK, AS NEEDED (PRN)
     Route: 065

REACTIONS (5)
  - Sepsis [Unknown]
  - Escherichia sepsis [Not Recovered/Not Resolved]
  - Pneumonia [Recovered/Resolved]
  - Phlebitis [Unknown]
  - Off label use [Unknown]

NARRATIVE: CASE EVENT DATE: 2019
